FAERS Safety Report 16273154 (Version 1)
Quarter: 2019Q2

REPORT INFORMATION
  Report Type: Spontaneous
  Country: US (occurrence: US)
  Receive Date: 20190329
  Receipt Date: 20190329
  Transmission Date: 20190711
  Serious: No
  Sender: FDA-Public Use
  Company Number: None

PATIENT
  Age: 69 Year
  Sex: Female

DRUGS (1)
  1. BOTOX [Suspect]
     Active Substance: ONABOTULINUMTOXINA
     Indication: MIGRAINE
     Dosage: ?          OTHER DOSE:155 UNITS;OTHER FREQUENCY:ONCE EVERY 3 MONTH;?STRENGTH 200U/VL
     Route: 030
     Dates: start: 20190220

REACTIONS (2)
  - Periorbital swelling [None]
  - Cheilitis [None]

NARRATIVE: CASE EVENT DATE: 20190320
